FAERS Safety Report 23586068 (Version 1)
Quarter: 2024Q1

REPORT INFORMATION
  Report Type: Spontaneous
  Country: TW (occurrence: TW)
  Receive Date: 20240301
  Receipt Date: 20240301
  Transmission Date: 20240410
  Serious: Yes (Other)
  Sender: FDA-Public Use
  Company Number: TW-BEH-2024169016

PATIENT
  Age: 61 Year
  Sex: Male

DRUGS (1)
  1. HUMAN IMMUNOGLOBULIN G [Suspect]
     Active Substance: HUMAN IMMUNOGLOBULIN G
     Indication: Myasthenia gravis
     Dosage: 600 MILLIGRAM/KILOGRAM, QD
     Route: 042

REACTIONS (5)
  - Arteriospasm coronary [Recovered/Resolved]
  - Cardiogenic shock [Recovered/Resolved]
  - Electrocardiogram ST segment elevation [Recovered/Resolved]
  - Ventricular tachycardia [Recovered/Resolved]
  - Hypotension [Recovered/Resolved]
